FAERS Safety Report 5259456-7 (Version None)
Quarter: 2007Q1

REPORT INFORMATION
  Report Type: 
  Country: None (occurrence: None)
  Receive Date: 20070305
  Receipt Date: 20070221
  Transmission Date: 20070707
  Serious: Yes (Other)
  Sender: FDA-Public Use
  Company Number: 230927K06USA

PATIENT
  Age: 41 Year
  Sex: Female

DRUGS (9)
  1. REBIF [Suspect]
     Indication: MULTIPLE SCLEROSIS
     Dosage: 44 MCG, 3 IN 1 WEEKS, SUBCUTANEOUS
     Route: 058
     Dates: start: 20040901
  2. HYDROMORPHONE HCL [Concomitant]
  3. TRAZODONE HCL [Concomitant]
  4. BACLOFEN [Concomitant]
  5. LORAZEPAM [Concomitant]
  6. OXYBUTYNIN (METFORMIN /00082701/) [Concomitant]
  7. METFORMIN [Concomitant]
  8. ACTOS [Concomitant]
  9. GLYBURIDE [Concomitant]

REACTIONS (1)
  - CARDIAC FAILURE CONGESTIVE [None]
